FAERS Safety Report 9485182 (Version 1)
Quarter: 2013Q3

REPORT INFORMATION
  Report Type: Spontaneous
  Country: DE (occurrence: DE)
  Receive Date: 20130828
  Receipt Date: 20130828
  Transmission Date: 20140515
  Serious: Yes (Other)
  Sender: FDA-Public Use
  Company Number: DE-MYLANLABS-2013S1018527

PATIENT
  Age: 48 Year
  Sex: Male

DRUGS (3)
  1. FLUOROURACIL [Suspect]
     Indication: COLORECTAL CANCER METASTATIC
     Dosage: 2600 MG/M2 ON D1, 8, 15, 22, 29, 36; NEXT CYCLE STARTS ON D57
     Route: 065
  2. ONCOFOLIC [Suspect]
     Indication: COLORECTAL CANCER METASTATIC
     Dosage: 500 MG/M2 CONTINUOUS 24-H INFUSION ON D1, 8, 15, 22, 29, 36; NEXT CYCLE STARTS ON D57
     Route: 050
  3. MITOMYCIN [Suspect]
     Indication: COLORECTAL CANCER METASTATIC
     Dosage: 10 MG/M2 BOLUSES ON D1, 22; NEXT CYCLE STARTS ON D57
     Route: 065

REACTIONS (4)
  - Blood bilirubin abnormal [Unknown]
  - Leukopenia [Unknown]
  - Thrombocytopenia [Unknown]
  - Haemoglobin abnormal [Unknown]
